FAERS Safety Report 7223525-2 (Version None)
Quarter: 2011Q1

REPORT INFORMATION
  Report Type: 
  Country: None (occurrence: None)
  Receive Date: 20110112
  Receipt Date: 20101108
  Transmission Date: 20110831
  Serious: No
  Sender: FDA-Public Use
  Company Number: US-ALLERGAN-1010321US

PATIENT
  Age: 74 Year
  Sex: Female

DRUGS (2)
  1. GENTEAL                            /00445101/ [Suspect]
     Indication: DRY EYE
  2. RESTASIS [Suspect]
     Indication: PRODUCT USED FOR UNKNOWN INDICATION
     Dosage: UNK

REACTIONS (4)
  - DRUG INEFFECTIVE [None]
  - FOREIGN BODY SENSATION IN EYES [None]
  - EYE IRRITATION [None]
  - VISION BLURRED [None]
